FAERS Safety Report 24467348 (Version 1)
Quarter: 2024Q4

REPORT INFORMATION
  Report Type: Report from Study
  Country: US (occurrence: US)
  Receive Date: 20241018
  Receipt Date: 20241018
  Transmission Date: 20250115
  Serious: No
  Sender: ROCHE
  Company Number: US-ROCHE-3558648

PATIENT
  Age: 71 Year
  Sex: Female
  Weight: 53.98 kg

DRUGS (1)
  1. XOLAIR [Suspect]
     Active Substance: OMALIZUMAB
     Indication: Asthma
     Route: 058

REACTIONS (4)
  - Arthralgia [Unknown]
  - Nasopharyngitis [Unknown]
  - Hypoxia [Unknown]
  - Obstructive sleep apnoea syndrome [Unknown]
